FAERS Safety Report 7027819-5 (Version None)
Quarter: 2010Q4

REPORT INFORMATION
  Report Type: 
  Country: None (occurrence: None)
  Receive Date: 20101001
  Receipt Date: 20101001
  Transmission Date: 20110411
  Serious: Yes (Life-Threatening, Hospitalization)
  Sender: FDA-Public Use
  Company Number: None

PATIENT
  Age: 52 Year
  Sex: Male
  Weight: 113.4 kg

DRUGS (2)
  1. PIPERACILLIN AND TAZOBACTAM [Suspect]
     Indication: ABSCESS LIMB
     Dosage: 4.5 GM QID IV
     Route: 042
     Dates: start: 20100914, end: 20100926
  2. PIPERACILLIN AND TAZOBACTAM [Suspect]
     Indication: OSTEOMYELITIS
     Dosage: 4.5 GM QID IV
     Route: 042
     Dates: start: 20100914, end: 20100926

REACTIONS (13)
  - ASTERIXIS [None]
  - ASTHENIA [None]
  - CHILLS [None]
  - CONFUSIONAL STATE [None]
  - DIALYSIS [None]
  - DIARRHOEA [None]
  - HAEMODIALYSIS [None]
  - HYPOAESTHESIA [None]
  - NEPHRITIS ALLERGIC [None]
  - PYREXIA [None]
  - RENAL FAILURE ACUTE [None]
  - URAEMIC ENCEPHALOPATHY [None]
  - VISUAL ACUITY REDUCED [None]
